FAERS Safety Report 18852941 (Version 1)
Quarter: 2021Q1

REPORT INFORMATION
  Report Type: Spontaneous
  Country: AR (occurrence: AR)
  Receive Date: 20210205
  Receipt Date: 20210205
  Transmission Date: 20210420
  Serious: Yes (Other)
  Sender: FDA-Public Use
  Company Number: AR-PFIZER INC-2021098559

PATIENT
  Age: 67 Year
  Sex: Female

DRUGS (1)
  1. XELJANZ [Suspect]
     Active Substance: TOFACITINIB CITRATE
     Indication: RHEUMATOID ARTHRITIS
     Dosage: 5 MG, 2X/DAY
     Dates: start: 20160713

REACTIONS (6)
  - Finger deformity [Unknown]
  - Urinary tract infection [Unknown]
  - Lithiasis [Unknown]
  - Anxiety [Unknown]
  - Anger [Unknown]
  - Stress [Unknown]

NARRATIVE: CASE EVENT DATE: 202101
